FAERS Safety Report 7622551-9 (Version None)
Quarter: 2011Q3

REPORT INFORMATION
  Report Type: 
  Country: None (occurrence: None)
  Receive Date: 20110719
  Receipt Date: 20110719
  Transmission Date: 20111222
  Serious: Yes (Life-Threatening, Hospitalization)
  Sender: FDA-Public Use
  Company Number: None

PATIENT
  Age: 19 Year
  Sex: Male
  Weight: 63.5036 kg

DRUGS (5)
  1. PREDNISONE [Concomitant]
  2. PENTASA [Suspect]
     Indication: CROHN'S DISEASE
     Dosage: 1 GRAM QID PO
     Route: 048
     Dates: start: 20110617, end: 20110706
  3. FLAGYL [Concomitant]
  4. OMAPRAZOLE [Concomitant]
  5. ZITHROMYCIN [Concomitant]

REACTIONS (9)
  - SINUS TACHYCARDIA [None]
  - EMBOLIC STROKE [None]
  - VENTRICULAR EXTRASYSTOLES [None]
  - MYOCARDITIS [None]
  - ATRIAL FIBRILLATION [None]
  - SUPRAVENTRICULAR EXTRASYSTOLES [None]
  - URINARY RETENTION [None]
  - PLEURITIC PAIN [None]
  - HYPOTENSION [None]
